FAERS Safety Report 9339023 (Version 1)
Quarter: 2013Q2

REPORT INFORMATION
  Report Type: Spontaneous
  Country: US (occurrence: None)
  Receive Date: 20130606
  Receipt Date: 20130606
  Transmission Date: 20140414
  Serious: Yes (Hospitalization)
  Sender: FDA-Public Use
  Company Number: None

PATIENT
  Age: 23 Year
  Sex: Male
  Weight: 89.81 kg

DRUGS (1)
  1. FLUOXOTHE 20 MG [Suspect]
     Route: 048
     Dates: start: 20010623, end: 20010707

REACTIONS (2)
  - Agitation [None]
  - Product substitution issue [None]
